FAERS Safety Report 11325291 (Version 4)
Quarter: 2015Q3

REPORT INFORMATION
  Report Type: Report from Study
  Country: US (occurrence: US)
  Receive Date: 20150730
  Receipt Date: 20150916
  Transmission Date: 20151125
  Serious: Yes (Other)
  Sender: FDA-Public Use
  Company Number: US-GILEAD-2015-0157857

PATIENT
  Age: 65 Year
  Sex: Female

DRUGS (1)
  1. LEDIPASVIR/SOFOSBUVIR [Suspect]
     Active Substance: LEDIPASVIR\SOFOSBUVIR
     Indication: CHRONIC HEPATITIS C
     Dosage: 1 DF, QD
     Route: 048
     Dates: start: 201505, end: 20150728

REACTIONS (14)
  - Hot flush [Not Recovered/Not Resolved]
  - Urine flow decreased [Unknown]
  - Hair texture abnormal [Unknown]
  - Cystitis interstitial [Unknown]
  - Pain in extremity [Unknown]
  - Muscle fatigue [Unknown]
  - Night sweats [Not Recovered/Not Resolved]
  - Urinary retention [Not Recovered/Not Resolved]
  - Burning sensation [Unknown]
  - Reduced bladder capacity [Not Recovered/Not Resolved]
  - Trichorrhexis [Unknown]
  - Constipation [Unknown]
  - Hyperhidrosis [Not Recovered/Not Resolved]
  - Headache [Not Recovered/Not Resolved]

NARRATIVE: CASE EVENT DATE: 2015
